FAERS Safety Report 19408217 (Version 1)
Quarter: 2021Q2

REPORT INFORMATION
  Report Type: Report from Study
  Country: FR (occurrence: FR)
  Receive Date: 20210611
  Receipt Date: 20210611
  Transmission Date: 20210717
  Serious: Yes (Hospitalization)
  Sender: FDA-Public Use
  Company Number: FR-PFIZER INC-2021680354

PATIENT
  Age: 78 Year
  Weight: 72 kg

DRUGS (3)
  1. BLINDED THERAPY [Suspect]
     Active Substance: INVESTIGATIONAL PRODUCT
     Indication: ANAL SQUAMOUS CELL CARCINOMA
     Dosage: UNK, CYCLIC (EVERY 4 WEEKS)
     Route: 042
  2. CARBOPLATIN. [Suspect]
     Active Substance: CARBOPLATIN
     Indication: ANAL SQUAMOUS CELL CARCINOMA
     Dosage: AUC 5, CYCLIC (EVERY 4 WEEKS)
     Route: 042
  3. PACLITAXEL. [Suspect]
     Active Substance: PACLITAXEL
     Indication: ANAL SQUAMOUS CELL CARCINOMA
     Dosage: 80 MG/M2, CYCLIC (DAY 1, 8 AND 15 OF EACH 28 DAY CYCLE)
     Route: 042

REACTIONS (1)
  - General physical health deterioration [Not Recovered/Not Resolved]

NARRATIVE: CASE EVENT DATE: 20210519
